FAERS Safety Report 25787034 (Version 3)
Quarter: 2025Q4

REPORT INFORMATION
  Report Type: Spontaneous
  Country: US (occurrence: US)
  Receive Date: 20250910
  Receipt Date: 20251113
  Transmission Date: 20260118
  Serious: No
  Sender: KYOWA
  Company Number: US-KYOWAKIRIN-2025KK017495

PATIENT

DRUGS (2)
  1. CRYSVITA [Suspect]
     Active Substance: BUROSUMAB-TWZA
     Indication: Hypophosphataemic osteomalacia
     Dosage: 40 MG, 1X/2 WEEKS
     Route: 058
     Dates: start: 20190514
  2. CRYSVITA [Suspect]
     Active Substance: BUROSUMAB-TWZA
     Dosage: 60 MG
     Route: 065
     Dates: start: 20250821

REACTIONS (4)
  - Blood phosphorus decreased [Recovered/Resolved]
  - Condition aggravated [Not Recovered/Not Resolved]
  - Incorrect dose administered [Recovered/Resolved]
  - Product use in unapproved indication [Unknown]

NARRATIVE: CASE EVENT DATE: 20240429
